FAERS Safety Report 7120214-X (Version None)
Quarter: 2010Q4

REPORT INFORMATION
  Report Type: 
  Country: None (occurrence: None)
  Receive Date: 20101123
  Receipt Date: 20101117
  Transmission Date: 20110411
  Serious: Yes (Hospitalization)
  Sender: FDA-Public Use
  Company Number: AT-ABBOTT-10P-008-0686342-00

PATIENT
  Sex: Female
  Weight: 51 kg

DRUGS (6)
  1. HUMIRA [Suspect]
     Indication: RHEUMATOID ARTHRITIS
     Route: 065
     Dates: start: 20090706
  2. BONIVA [Suspect]
     Indication: OSTEOPOROSIS
     Route: 065
     Dates: start: 20040101
  3. MEDICATION FOR THE TREATMENT OF HYPERTENSION [Concomitant]
     Indication: HYPERTENSION
     Route: 065
  4. MEDICATION TO SAVE THE STOMACH [Concomitant]
     Indication: PRODUCT USED FOR UNKNOWN INDICATION
     Route: 065
  5. LYRICA [Concomitant]
     Indication: PAIN
     Route: 065
  6. MTX [Concomitant]
     Indication: RHEUMATOID ARTHRITIS
     Route: 065

REACTIONS (1)
  - JAW DISORDER [None]
